FAERS Safety Report 13364233 (Version 3)
Quarter: 2017Q2

REPORT INFORMATION
  Report Type: Spontaneous
  Country: JP (occurrence: JP)
  Receive Date: 20170323
  Receipt Date: 20170428
  Transmission Date: 20170830
  Serious: Yes (Life-Threatening, Hospitalization, Other)
  Sender: FDA-Public Use
  Company Number: JP-PFIZER INC-2016400877

PATIENT
  Age: 81 Year
  Sex: Female
  Weight: 49 kg

DRUGS (16)
  1. RHEUMATREX [Suspect]
     Active Substance: METHOTREXATE SODIUM
     Dosage: 8 MG, WEEKLY (2 MG FIRST DAY MORNING, 4 MG SECOND DAY MORNING, AND 2 MG ON THE SECOND DAY EVENING
     Route: 048
     Dates: start: 20090325, end: 20160623
  2. SINGULAIR [Suspect]
     Active Substance: MONTELUKAST SODIUM
     Dosage: 10 MG, 1X/DAY
     Route: 048
     Dates: start: 201606, end: 20160625
  3. VALTREX [Concomitant]
     Active Substance: VALACYCLOVIR HYDROCHLORIDE
     Dosage: 1000 MG, 2X/DAY
     Route: 048
     Dates: start: 20160624, end: 20160627
  4. PREDNISOLONE. [Concomitant]
     Active Substance: PREDNISOLONE
     Dosage: 14 MG, DAILY
     Route: 048
  5. FOLIAMIN [Concomitant]
     Active Substance: FOLIC ACID
     Dosage: 1 MG, 1X/DAY
     Route: 048
     Dates: start: 2001, end: 20160625
  6. TALION [Suspect]
     Active Substance: BEPOTASTINE
     Dosage: 10 MG, 2X/DAY
     Route: 048
     Dates: start: 201606, end: 20160625
  7. CYTOTEC [Suspect]
     Active Substance: MISOPROSTOL
     Dosage: UNK UNK, 3X/DAY
     Route: 048
     Dates: start: 20160617, end: 20160625
  8. VALTREX [Concomitant]
     Active Substance: VALACYCLOVIR HYDROCHLORIDE
     Dosage: 1000 MG, 2X/DAY
     Route: 048
     Dates: start: 20160627, end: 20160706
  9. RABEPRAZOLE NA [Concomitant]
     Active Substance: RABEPRAZOLE SODIUM
     Dosage: 10 MG, 2X/DAY
     Route: 048
     Dates: start: 20160626, end: 20160630
  10. METHYCOBAL [Suspect]
     Active Substance: METHYLCOBALAMIN
     Dosage: 500 UG, 3X/DAY
     Route: 048
     Dates: start: 20160624, end: 20160629
  11. PREDNISOLONE. [Concomitant]
     Active Substance: PREDNISOLONE
     Dosage: 9 MG, 1X/DAY
     Route: 048
     Dates: start: 20060123
  12. PREDNISOLONE. [Concomitant]
     Active Substance: PREDNISOLONE
     Dosage: 9 MG, 1X/DAY
     Route: 048
     Dates: end: 20160628
  13. AMOBAN [Concomitant]
     Active Substance: ZOPICLONE
     Dosage: 7.5 MG, 1X/DAY
     Route: 048
     Dates: start: 2007, end: 20160629
  14. COLCHICINE. [Suspect]
     Active Substance: COLCHICINE
     Dosage: 1 MG, 2X/DAY
     Route: 048
     Dates: start: 201606, end: 20160625
  15. PREDONINE [Concomitant]
     Active Substance: PREDNISOLONE
     Dosage: 10 MG, 1X/DAY
     Route: 041
     Dates: start: 20160629, end: 20160703
  16. PROGRAF [Concomitant]
     Active Substance: TACROLIMUS\TACROLIMUS ANHYDROUS
     Dosage: 2 MG, 1X/DAY
     Route: 048
     Dates: start: 20060417, end: 20160625

REACTIONS (10)
  - Ileal ulcer [Recovering/Resolving]
  - Pneumonia aspiration [Unknown]
  - Large intestine erosion [Recovering/Resolving]
  - Herpes zoster [Unknown]
  - Pneumocystis jirovecii pneumonia [Recovered/Resolved]
  - Pancytopenia [Recovered/Resolved]
  - Oral mucosa erosion [Recovered/Resolved]
  - Haemorrhage [Recovered/Resolved]
  - Skin ulcer [Recovered/Resolved]
  - Pharyngeal erosion [Recovering/Resolving]

NARRATIVE: CASE EVENT DATE: 201606
